FAERS Safety Report 23351853 (Version 1)
Quarter: 2023Q4

REPORT INFORMATION
  Report Type: Spontaneous
  Country: US (occurrence: US)
  Receive Date: 20231229
  Receipt Date: 20231229
  Transmission Date: 20240110
  Serious: Yes (Death, Hospitalization, Other)
  Sender: FDA-Public Use
  Company Number: US-GLAXOSMITHKLINE-US2023GSK179910

PATIENT

DRUGS (1)
  1. BUPROPION [Suspect]
     Active Substance: BUPROPION
     Indication: Depression
     Dosage: APPROX. 96 TABLETS, (14.4G TOTAL)
     Route: 048

REACTIONS (21)
  - Suspected suicide [Fatal]
  - Overdose [Fatal]
  - Vomiting [Fatal]
  - Tachycardia [Fatal]
  - Seizure [Fatal]
  - Unresponsive to stimuli [Fatal]
  - Agitation [Fatal]
  - Tremor [Fatal]
  - Cardiac arrest [Fatal]
  - Ventricular tachycardia [Fatal]
  - Pleural effusion [Fatal]
  - Pulmonary hypertension [Fatal]
  - Ecchymosis [Fatal]
  - Petechiae [Fatal]
  - Illness [Fatal]
  - Harlequin syndrome [Fatal]
  - Compartment syndrome [Fatal]
  - Acute kidney injury [Fatal]
  - Blister [Fatal]
  - Cardiogenic shock [Fatal]
  - Distributive shock [Fatal]
